FAERS Safety Report 7519223-8 (Version None)
Quarter: 2011Q2

REPORT INFORMATION
  Report Type: 
  Country: None (occurrence: None)
  Receive Date: 20110602
  Receipt Date: 20110214
  Transmission Date: 20111010
  Serious: No
  Sender: FDA-Public Use
  Company Number: US-BRISTOL-MYERS SQUIBB COMPANY-15549793

PATIENT
  Age: 64 Year
  Sex: Male

DRUGS (3)
  1. PRAVASTATIN SODIUM [Concomitant]
  2. KOMBIGLYZE XR [Suspect]
     Indication: TYPE 2 DIABETES MELLITUS
  3. LISINOPRIL [Concomitant]

REACTIONS (4)
  - CONSTIPATION [None]
  - BLOOD GLUCOSE INCREASED [None]
  - DRY MOUTH [None]
  - CHAPPED LIPS [None]
